FAERS Safety Report 4541894-9 (Version None)
Quarter: 2004Q4

REPORT INFORMATION
  Report Type: 
  Country: None (occurrence: None)
  Receive Date: 20041227
  Receipt Date: 20041220
  Transmission Date: 20050328
  Serious: Yes (Life-Threatening)
  Sender: FDA-Public Use
  Company Number: 2004GB03167

PATIENT
  Age: 48 Year
  Sex: Female

DRUGS (8)
  1. LISINOPRIL [Suspect]
     Indication: HYPERTENSION
  2. BISOPROLOL FUMARATE [Concomitant]
  3. ACETYLSALICYLIC ACID SRT [Concomitant]
  4. VALPROIC ACID [Concomitant]
  5. OMEPRAZOLE [Concomitant]
  6. LOFEPRAMINE [Concomitant]
  7. CONJUGATED ESTROGENS [Concomitant]
  8. PHENOXYMETHYLPENICILLNI [Concomitant]

REACTIONS (5)
  - ANGIONEUROTIC OEDEMA [None]
  - DYSPHAGIA [None]
  - DYSPHONIA [None]
  - DYSPNOEA [None]
  - SPEECH DISORDER [None]
